FAERS Safety Report 5659497-1 (Version None)
Quarter: 2008Q1

REPORT INFORMATION
  Report Type: 
  Country: None (occurrence: None)
  Receive Date: 20080311
  Receipt Date: 20080229
  Transmission Date: 20080703
  Serious: Yes (Death, Other)
  Sender: FDA-Public Use
  Company Number: PHBS2008TR02993

PATIENT
  Age: 44 Year
  Sex: Male

DRUGS (4)
  1. CYCLOSPORINE [Suspect]
     Indication: STEM CELL TRANSPLANT
     Dosage: UNK, UNK
     Dates: start: 19991101
  2. METHOTREXATE [Concomitant]
     Indication: STEM CELL TRANSPLANT
  3. BUSULPHAN [Concomitant]
     Indication: STEM CELL TRANSPLANT
  4. CYCLOPHOSPHAMIDE [Concomitant]
     Indication: STEM CELL TRANSPLANT

REACTIONS (8)
  - CHRONIC GRAFT VERSUS HOST DISEASE [None]
  - DIARRHOEA [None]
  - PNEUMOCYSTIS JIROVECI INFECTION [None]
  - RESPIRATORY FAILURE [None]
  - SKIN DEPIGMENTATION [None]
  - SKIN EXFOLIATION [None]
  - SKIN HYPERPIGMENTATION [None]
  - VITILIGO [None]
